FAERS Safety Report 15684039 (Version 2)
Quarter: 2018Q4

REPORT INFORMATION
  Report Type: Report from Study
  Country: DE (occurrence: DE)
  Receive Date: 20181204
  Receipt Date: 20181215
  Transmission Date: 20190205
  Serious: Yes (Hospitalization)
  Sender: FDA-Public Use
  Company Number: DE-ACCORD-094617

PATIENT
  Age: 40 Year
  Sex: Male
  Weight: 120 kg

DRUGS (5)
  1. AMITRIPTYLINE [Suspect]
     Active Substance: AMITRIPTYLINE
     Indication: PRODUCT USED FOR UNKNOWN INDICATION
     Dosage: 75 MG  01-SEP-2015 TO 11-APR-201750 MG 12-APR-2017  TO 18-APR-2017?25 MG 19-APR-2017 TO 25-APR-2017
     Route: 048
     Dates: start: 20150901, end: 20170425
  2. AMOROLFINE/AMOROLFINE HYDROCHLORIDE [Concomitant]
     Indication: FUNGAL INFECTION
  3. LITHIUM. [Suspect]
     Active Substance: LITHIUM
     Indication: PRODUCT USED FOR UNKNOWN INDICATION
     Dosage: 1125 MG FROM  01-SEP-2015 TO 08-MAY-2017 THEN 1350 MG FROM 09-MAY-2017
     Route: 048
     Dates: start: 20150901, end: 20170509
  4. BATRAFEN [Concomitant]
     Indication: FUNGAL INFECTION
  5. OCTENIDINE DIHYDROCHLORIDE/PROPANOL [Concomitant]
     Indication: FUNGAL INFECTION

REACTIONS (2)
  - Testicular pain [Unknown]
  - Erectile dysfunction [Recovering/Resolving]

NARRATIVE: CASE EVENT DATE: 20170215
